FAERS Safety Report 10261511 (Version 2)
Quarter: 2014Q2

REPORT INFORMATION
  Report Type: Spontaneous
  Country: US (occurrence: US)
  Receive Date: 20140626
  Receipt Date: 20140626
  Transmission Date: 20141212
  Serious: No
  Sender: FDA-Public Use
  Company Number: US-MYLANLABS-2013S1019259

PATIENT
  Age: 69 Year
  Sex: Female
  Weight: 65.77 kg

DRUGS (11)
  1. PERFOROMIST (FORMOTEROL FUMARATE) INHALATION SOLUTION [Suspect]
     Indication: ASTHMA
     Route: 055
     Dates: start: 20130819, end: 20130825
  2. PERFOROMIST (FORMOTEROL FUMARATE) INHALATION SOLUTION [Suspect]
     Indication: CHRONIC SINUSITIS
     Route: 055
     Dates: start: 20130819, end: 20130825
  3. PERFOROMIST (FORMOTEROL FUMARATE) INHALATION SOLUTION [Suspect]
     Indication: CHRONIC OBSTRUCTIVE PULMONARY DISEASE
     Route: 055
     Dates: start: 20130819, end: 20130825
  4. COMBIVENT [Concomitant]
  5. HYPERTENSION MEDICATION [Concomitant]
  6. DIURETIC [Concomitant]
  7. SYNTHROID [Concomitant]
     Indication: THYROID DISORDER
  8. THEOPHYLLINE [Concomitant]
     Dosage: 200MG QAM, 100MG QPM
  9. SPIRIVA [Concomitant]
  10. ALLEGRA [Concomitant]
     Indication: HYPERSENSITIVITY
  11. SINGULAIR [Concomitant]
     Dosage: QPM

REACTIONS (1)
  - Muscle spasms [Recovered/Resolved]
